FAERS Safety Report 23393350 (Version 10)
Quarter: 2024Q2

REPORT INFORMATION
  Report Type: Spontaneous
  Country: US (occurrence: US)
  Receive Date: 20240111
  Receipt Date: 20240523
  Transmission Date: 20240716
  Serious: Yes (Other)
  Sender: FDA-Public Use
  Company Number: US-VERTEX PHARMACEUTICALS-2024-000309

PATIENT
  Age: 59 Year

DRUGS (4)
  1. TRIKAFTA [Suspect]
     Active Substance: ELEXACAFTOR\IVACAFTOR\TEZACAFTOR
     Indication: Cystic fibrosis
     Dosage: UNKNOWN DOSE
     Route: 048
  2. TRIKAFTA [Suspect]
     Active Substance: ELEXACAFTOR\IVACAFTOR\TEZACAFTOR
     Dosage: EVERY OTHER DAY; ONLY AM DOSE
     Route: 048
  3. TRIKAFTA [Suspect]
     Active Substance: ELEXACAFTOR\IVACAFTOR\TEZACAFTOR
     Dosage: PEDIATRIC DOSE
     Route: 048
  4. MARAX [Suspect]
     Active Substance: CROTAMITON
     Indication: Product used for unknown indication
     Dosage: UNK
     Route: 065

REACTIONS (13)
  - Pancreatitis chronic [Unknown]
  - Sleep terror [Recovered/Resolved]
  - Emotional disorder [Unknown]
  - Gastrointestinal disorder [Unknown]
  - Malabsorption [Unknown]
  - Weight decreased [Unknown]
  - Anxiety [Recovering/Resolving]
  - Pancreatic failure [Not Recovered/Not Resolved]
  - Brain fog [Unknown]
  - Insomnia [Not Recovered/Not Resolved]
  - Poor quality sleep [Recovered/Resolved]
  - Gastrointestinal pain [Unknown]
  - Affect lability [Unknown]
